FAERS Safety Report 6879710-2 (Version None)
Quarter: 2010Q3

REPORT INFORMATION
  Report Type: 
  Country: None (occurrence: None)
  Receive Date: 20100728
  Receipt Date: 20100715
  Transmission Date: 20110219
  Serious: No
  Sender: FDA-Public Use
  Company Number: US-B.I. PHARMACEUTICALS,INC./RIDGEFIELD-2010-BP-01706BP

PATIENT
  Age: 75 Year
  Sex: Male

DRUGS (1)
  1. MICARDIS HCT [Suspect]
     Indication: HYPERTENSION
     Dates: end: 20100301

REACTIONS (4)
  - BLOOD PRESSURE INADEQUATELY CONTROLLED [None]
  - BLOOD PRESSURE INCREASED [None]
  - DRUG EFFECT DECREASED [None]
  - HYPERTENSION [None]
